FAERS Safety Report 5101040-X (Version None)
Quarter: 2006Q3

REPORT INFORMATION
  Report Type: 
  Country: None (occurrence: None)
  Receive Date: 20060906
  Receipt Date: 20060823
  Transmission Date: 20061208
  Serious: Yes (Other)
  Sender: FDA-Public Use
  Company Number: 2006BH010001

PATIENT
  Age: 35 Year
  Sex: Female
  Weight: 52.5 kg

DRUGS (8)
  1. SEVOFLURANE [Suspect]
     Indication: ANAESTHESIA
  2. ALOE VERA (ALOE VERA) [Suspect]
     Indication: PAIN IN EXTREMITY
     Dosage: 4 TAB; EVERY DAY; PO
     Route: 048
  3. PROPOFOL [Concomitant]
  4. FENTANYL [Concomitant]
  5. ROCURONIUM [Concomitant]
  6. CEFAZOLIN [Concomitant]
  7. NITROUS OXIDE W/ OXYGEN [Concomitant]
  8. MORPHINE [Concomitant]

REACTIONS (9)
  - DRUG INTERACTION [None]
  - HAEMOGLOBIN DECREASED [None]
  - OPERATIVE HAEMORRHAGE [None]
  - PLATELET COUNT DECREASED [None]
  - POSTOPERATIVE ADHESION [None]
  - POSTOPERATIVE WOUND COMPLICATION [None]
  - PROCEDURAL HYPOTENSION [None]
  - WOUND HAEMORRHAGE [None]
  - WOUND SECRETION [None]
